FAERS Safety Report 25946584 (Version 3)
Quarter: 2025Q4

REPORT INFORMATION
  Report Type: Report from Study
  Country: US (occurrence: US)
  Receive Date: 20251022
  Receipt Date: 20251217
  Transmission Date: 20260117
  Serious: Yes (Hospitalization, Other)
  Sender: REGENERON
  Company Number: US-REGENERON PHARMACEUTICALS, INC.-2025-131636

PATIENT
  Sex: Female

DRUGS (29)
  1. EVINACUMAB [Suspect]
     Active Substance: EVINACUMAB
     Indication: Type IIa hyperlipidaemia
     Dosage: 1230 MG, MONTHLY, STRENGTH: 345 MG
     Route: 042
     Dates: start: 2025
  2. TYLENOL [Concomitant]
     Active Substance: ACETAMINOPHEN
     Indication: Product used for unknown indication
     Dosage: TAKE 2 TABLETS BY MOUTH EVERY 6 HOURS AS NEEDED; STRENGTH: 500 MG
     Route: 048
  3. ELAVIL [Concomitant]
     Active Substance: AMITRIPTYLINE HYDROCHLORIDE
     Indication: Product used for unknown indication
     Dosage: TAKE 5 TABLETS BY MOUTH AT BEDTIME; STRENGTH: 10 MG
     Route: 048
  4. VITAMIN D3 [Concomitant]
     Active Substance: CHOLECALCIFEROL
     Indication: Product used for unknown indication
     Dosage: TAKE 1 TABLET BY MOUTH DAILY .STRENGTH: 25MCG (1000 UNIT)
     Route: 048
  5. KLONOPIN [Concomitant]
     Active Substance: CLONAZEPAM
     Indication: Product used for unknown indication
     Dosage: TAKE 1 TABLET BY MOUTH DAILY .STRENGTH; 0.5 MG
     Route: 048
  6. DICLOFENAC [Concomitant]
     Active Substance: DICLOFENAC
     Indication: Product used for unknown indication
     Dosage: APPLY 4 G TOPICALLY 4 TIMES DAILY AS NEEDED, SRENGTH: 1 %
     Route: 061
  7. REPATHA [Concomitant]
     Active Substance: EVOLOCUMAB
     Indication: Product used for unknown indication
     Dosage: 140 MG, Q2W, INJECT 1 AUTO INJECTOR (140 MG) UNDER THE SKIN EVERY 14 DAYS: SRENGTH; 140 MG/ML
     Route: 058
  8. ZETIA [Concomitant]
     Active Substance: EZETIMIBE
     Indication: Product used for unknown indication
     Dosage: TAKE 1 TABLET MOUTH DAILY, SRENGTH; 10MG
     Route: 048
  9. DERMOTIC [Concomitant]
     Active Substance: FLUOCINOLONE ACETONIDE
     Indication: Product used for unknown indication
     Dosage: PLACE 5 DROPS INTO THE LEFT EAR 2 TIMES DAILY FOR 7 DAYS, STRENGTH: 0.01% OTIC SOLUTION (CONTAINS PE
     Route: 065
  10. NEURONTIN [Concomitant]
     Active Substance: GABAPENTIN
     Indication: Product used for unknown indication
     Dosage: TAKE 2 CAPSULES BY MOUTH 3 TIMES DAILY, STRENGTH; 300 MG
     Route: 048
  11. EMGALITY [Concomitant]
     Active Substance: GALCANEZUMAB-GNLM
     Indication: Product used for unknown indication
     Dosage: IN THE FIRST MONTH INJECT 240 MG SUBCUTANEOUSLY THEN EVERY MONTH AFTER INJECT 120 MG, STRENGTH;120MG
     Route: 058
  12. LORCET [Concomitant]
     Active Substance: ACETAMINOPHEN\HYDROCODONE BITARTRATE
     Indication: Pain
     Dosage: TAKE 1 TABLET BY MOUTH EVERY 6 HOURS AS NEEDED FOR SEVERE PAIN, STRENGTH; 5-325 MG
     Route: 048
  13. LAMICTAL [Concomitant]
     Active Substance: LAMOTRIGINE
     Indication: Product used for unknown indication
     Dosage: TAKE 1 TABLET BY MOUTH DAILY, STRENGTH; 25 MG
     Route: 048
  14. COZAAR [Concomitant]
     Active Substance: LOSARTAN POTASSIUM
     Indication: Product used for unknown indication
     Dosage: TAKE 0.5 TABLETS BY MOUTH EVERY MORNING, STRENGTH: 25 MG
     Route: 048
  15. PROVERA [Concomitant]
     Active Substance: MEDROXYPROGESTERONE ACETATE
     Indication: Product used for unknown indication
     Dosage: TAKE 1 TABLET BY MOUTH DAILY, STRENGTH;10 MG
     Route: 048
  16. TOPROL XL [Concomitant]
     Active Substance: METOPROLOL SUCCINATE
     Indication: Product used for unknown indication
     Dosage: TAKE 1 TABLET BY MOUTH DAILY, STRENGTH; 25 MG; EXTENDED RELEASE 24HR TABLET
     Route: 048
  17. SINGULAIR [Concomitant]
     Active Substance: MONTELUKAST SODIUM
     Indication: Product used for unknown indication
     Dosage: TAKE 1 TABLET BY MOUTH DAILY, STRENGTH; 10 MG
     Route: 048
  18. PRILOSEC [Concomitant]
     Active Substance: OMEPRAZOLE MAGNESIUM
     Indication: Product used for unknown indication
     Dosage: TAKE 1 CAPSULE BY MOUTH EACH MORNING BEFORE BREAKFAST, STRENGTH; 40 MG
     Route: 048
  19. OXYCONTIN [Concomitant]
     Active Substance: OXYCODONE HYDROCHLORIDE
     Indication: Product used for unknown indication
     Dosage: TAKE BY MOUTH EVERY 12 HOURS. STRENGTH; 10 MG
     Route: 048
  20. LYRICA [Concomitant]
     Active Substance: PREGABALIN
     Indication: Product used for unknown indication
     Dosage: TAKE 1 CAPSULE BY MOUTH 2 TIMES DAILY STRENGTH: 75 MG
     Route: 048
  21. NURTEC ODT [Concomitant]
     Active Substance: RIMEGEPANT SULFATE
     Indication: Headache
     Dosage: AS NECESSARY, TAKE 1 TABLET AS NEEDED FOER SEVERE HEADACHE. NO MORE THAN ONE PILL A DAY. STRENGTH; 7
     Route: 048
  22. OZEMPIC [Concomitant]
     Active Substance: SEMAGLUTIDE
     Indication: Product used for unknown indication
     Dosage: 1 MG, QW, INJECT 1 MG UNDER THE SKIN EVERY 7 DAYS, STRENGTH; 1MG/ DOSE (4MG/3ML)
     Route: 058
  23. TOPAMAX [Concomitant]
     Active Substance: TOPIRAMATE
     Indication: Product used for unknown indication
     Dosage: TAKE 1 TABLET BY MOUTH AT BEDTIME, STRENGTH; 25 MG
     Route: 048
  24. DESYREL [Concomitant]
     Active Substance: TRAZODONE HYDROCHLORIDE
     Indication: Insomnia
     Dosage: AS NECESSARY,TAKE 1 TABLET BY MOUTH AT BEDTIME ASNEEDED FOR SLEEP; STRENGTH; 50 MG
     Route: 048
  25. UBRELVY [Concomitant]
     Active Substance: UBROGEPANT
     Indication: Headache
     Dosage: TAKE 1 TABLET AS NEEDED FOR SEVERE HEADACHE. MAY REPEAT 2 HOURS LATER IF NEEDED. NO MORE THAN 2 PILL
     Route: 048
  26. EFFEXOR [Concomitant]
     Active Substance: VENLAFAXINE HYDROCHLORIDE
     Indication: Product used for unknown indication
     Dosage: QD, TAKE 1 CAPSULE BY MOUTH EVERY MORNINNG, STRENGTH; 150 MG
     Route: 048
  27. VRAYLAR [Concomitant]
     Active Substance: CARIPRAZINE
     Indication: Product used for unknown indication
     Dosage: TAKE 1 CAPSULE BY MOUTH DAILY. (PATIENT TAKING DIFFERENTLY; TAKE 2 CAPSULES BY MOUTH DAILY) STRENGTH
     Route: 048
  28. ASPIRIN [Concomitant]
     Active Substance: ASPIRIN
     Indication: Product used for unknown indication
     Dosage: 81 MG, QD
     Route: 065
  29. ROSUVASTATIN [Concomitant]
     Active Substance: ROSUVASTATIN
     Indication: Product used for unknown indication
     Dosage: 40 MG
     Route: 065

REACTIONS (13)
  - Loss of consciousness [Recovered/Resolved]
  - Chest pain [Recovered/Resolved]
  - Hypoaesthesia [Recovered/Resolved]
  - Unresponsive to stimuli [Recovered/Resolved]
  - Agonal respiration [Recovered/Resolved]
  - Tremor [Not Recovered/Not Resolved]
  - Infusion related reaction [Recovered/Resolved]
  - Vomiting [Not Recovered/Not Resolved]
  - Diarrhoea [Not Recovered/Not Resolved]
  - Low density lipoprotein increased [Not Recovered/Not Resolved]
  - Renal disorder [Not Recovered/Not Resolved]
  - Nausea [Not Recovered/Not Resolved]
  - Asthenia [Not Recovered/Not Resolved]

NARRATIVE: CASE EVENT DATE: 20251016
